FAERS Safety Report 8489094-4 (Version None)
Quarter: 2012Q3

REPORT INFORMATION
  Report Type: 
  Country: None (occurrence: None)
  Receive Date: 20120705
  Receipt Date: 20120627
  Transmission Date: 20120928
  Serious: Yes (Hospitalization)
  Sender: FDA-Public Use
  Company Number: FR-VERTEX PHARMACEUTICALS INC.-AE-2011-000297

PATIENT
  Sex: Male
  Weight: 83 kg

DRUGS (7)
  1. VX-950 [Suspect]
     Indication: HEPATITIS C
     Dates: start: 20110316, end: 20110607
  2. ATARAX [Concomitant]
     Indication: INSOMNIA
     Dates: start: 20100626
  3. ATARAX [Concomitant]
     Indication: ANXIETY
  4. PEGASYS [Concomitant]
     Indication: HEPATITIS C
     Route: 058
     Dates: start: 20110321, end: 20110607
  5. ACETAMINOPHEN [Concomitant]
     Route: 048
     Dates: start: 20110321
  6. COPEGUS [Concomitant]
     Indication: HEPATITIS C
     Route: 048
     Dates: start: 20110321, end: 20110607
  7. ESOMEPRAZOLE MAGNESIUM [Concomitant]
     Indication: GASTRITIS

REACTIONS (2)
  - LUNG DISORDER [None]
  - PULMONARY EMBOLISM [None]
